FAERS Safety Report 15181076 (Version 1)
Quarter: 2018Q3

REPORT INFORMATION
  Report Type: Spontaneous
  Country: DE (occurrence: DE)
  Receive Date: 20180723
  Receipt Date: 20180723
  Transmission Date: 20181010
  Serious: Yes (Hospitalization)
  Sender: FDA-Public Use
  Company Number: PHHY2018DE050703

PATIENT
  Age: 66 Year
  Sex: Male
  Weight: 86 kg

DRUGS (12)
  1. RANITIDIN [Concomitant]
     Active Substance: RANITIDINE HYDROCHLORIDE
     Indication: PRODUCT USED FOR UNKNOWN INDICATION
     Dosage: 150 MG, 0?0?1?0, TABLETTEN
     Route: 048
  2. VERGENTAN [Concomitant]
     Active Substance: ALIZAPRIDE HYDROCHLORIDE
     Indication: PRODUCT USED FOR UNKNOWN INDICATION
     Dosage: 50 MG, SCHEMA, TABLETTEN
     Route: 048
  3. FENTANYL. [Concomitant]
     Active Substance: FENTANYL
     Indication: PRODUCT USED FOR UNKNOWN INDICATION
     Dosage: 37.5 ?G/H, SCHEMA, PFLASTER TRANSDERMAL
     Route: 062
  4. NOVALGIN (METAMIZOLE SODIUM) [Concomitant]
     Active Substance: METAMIZOLE SODIUM
     Indication: PRODUCT USED FOR UNKNOWN INDICATION
     Dosage: 40 GTT, 1?1?1?1, TROPFEN
     Route: 048
  5. NEBILET [Concomitant]
     Active Substance: NEBIVOLOL
     Indication: PRODUCT USED FOR UNKNOWN INDICATION
     Dosage: 5 MG, 0.5?0?0?0, TABLETTEN
     Route: 048
  6. INEGY [Concomitant]
     Active Substance: EZETIMIBE\SIMVASTATIN
     Indication: PRODUCT USED FOR UNKNOWN INDICATION
     Dosage: 10|80 MG, 0?0?1?0, TABLETTEN
     Route: 048
  7. CARBOPLATIN. [Suspect]
     Active Substance: CARBOPLATIN
     Indication: PRODUCT USED FOR UNKNOWN INDICATION
     Dosage: 92 MG / TAG, SCHEMA, INJEKTIONS?/INFUSIONSL?SUNG
     Route: 042
  8. XYLOCAINE [Concomitant]
     Active Substance: LIDOCAINE HYDROCHLORIDE
     Indication: PRODUCT USED FOR UNKNOWN INDICATION
     Dosage: BEDARF
     Route: 065
  9. MOVICOL [Concomitant]
     Active Substance: POLYETHYLENE GLYCOL 3350\POTASSIUM CHLORIDE\SODIUM BICARBONATE\SODIUM CHLORIDE
     Indication: PRODUCT USED FOR UNKNOWN INDICATION
     Dosage: 13.125|0.35|0.18|0.05 G, 1?0?0?0, BEUTEL
     Route: 048
  10. RAMIPRIL + HIDROCLOROTIAZIDA [Concomitant]
     Active Substance: HYDROCHLOROTHIAZIDE\RAMIPRIL
     Indication: PRODUCT USED FOR UNKNOWN INDICATION
     Dosage: 5|25 MG, 1?0?0?0, TABLETTEN
     Route: 048
  11. ASPIRIN. [Concomitant]
     Active Substance: ASPIRIN
     Indication: PRODUCT USED FOR UNKNOWN INDICATION
     Dosage: 100 MG, 1?0?0?0, TABLETTEN
     Route: 048
  12. ONDANSETRON [Concomitant]
     Active Substance: ONDANSETRON
     Indication: PRODUCT USED FOR UNKNOWN INDICATION
     Dosage: 8 MG, SCHEMA, TABLETTEN
     Route: 048

REACTIONS (4)
  - Dyspnoea [Unknown]
  - Cough [Unknown]
  - Productive cough [Unknown]
  - Hypertension [Unknown]
